FAERS Safety Report 12115435 (Version 2)
Quarter: 2016Q1

REPORT INFORMATION
  Report Type: Spontaneous
  Country: US (occurrence: US)
  Receive Date: 20160225
  Receipt Date: 20160301
  Transmission Date: 20160526
  Serious: No
  Sender: FDA-Public Use
  Company Number: US-BAYER-2016-029727

PATIENT
  Age: 80 Year
  Sex: Female

DRUGS (2)
  1. FINACEA [Suspect]
     Active Substance: AZELAIC ACID
     Indication: ROSACEA
     Dosage: UNK
     Route: 061
  2. FINACEA [Suspect]
     Active Substance: AZELAIC ACID
     Indication: ROSACEA
     Dosage: UNK

REACTIONS (4)
  - Product container issue [None]
  - Acne [Unknown]
  - Rash [Unknown]
  - Rosacea [Unknown]
